FAERS Safety Report 24759542 (Version 4)
Quarter: 2025Q1

REPORT INFORMATION
  Report Type: Spontaneous
  Country: US (occurrence: None)
  Receive Date: 20241220
  Receipt Date: 20250326
  Transmission Date: 20250408
  Serious: Yes (Hospitalization, Other)
  Sender: INCYTE
  Company Number: US-INCYTE CORPORATION-2024IN013415

PATIENT
  Age: 72 Year
  Weight: 76.19 kg

DRUGS (18)
  1. JAKAFI [Suspect]
     Active Substance: RUXOLITINIB
     Indication: Chronic graft versus host disease in lung
     Route: 065
  2. JAKAFI [Suspect]
     Active Substance: RUXOLITINIB
     Indication: Chronic graft versus host disease in skin
  3. JAKAFI [Suspect]
     Active Substance: RUXOLITINIB
     Indication: Graft versus host disease in eye
  4. JAKAFI [Suspect]
     Active Substance: RUXOLITINIB
     Indication: Graft versus host disease oral
  5. JAKAFI [Suspect]
     Active Substance: RUXOLITINIB
     Indication: Chronic graft versus host disease
  6. AXATILIMAB [Concomitant]
     Active Substance: AXATILIMAB
     Indication: Chronic graft versus host disease in lung
  7. AXATILIMAB [Concomitant]
     Active Substance: AXATILIMAB
     Indication: Chronic graft versus host disease in skin
  8. AXATILIMAB [Concomitant]
     Active Substance: AXATILIMAB
     Indication: Chronic graft versus host disease in eye
  9. AXATILIMAB [Concomitant]
     Active Substance: AXATILIMAB
     Indication: Graft versus host disease oral
  10. REZUROCK [Concomitant]
     Active Substance: BELUMOSUDIL
     Indication: Chronic graft versus host disease in lung
     Route: 065
  11. REZUROCK [Concomitant]
     Active Substance: BELUMOSUDIL
     Indication: Chronic graft versus host disease in skin
  12. REZUROCK [Concomitant]
     Active Substance: BELUMOSUDIL
     Indication: Chronic graft versus host disease in eye
  13. REZUROCK [Concomitant]
     Active Substance: BELUMOSUDIL
     Indication: Graft versus host disease oral
  14. RITUXAN [Concomitant]
     Active Substance: RITUXIMAB
     Indication: Chronic graft versus host disease in lung
     Route: 065
  15. RITUXAN [Concomitant]
     Active Substance: RITUXIMAB
     Indication: Chronic graft versus host disease in skin
  16. RITUXAN [Concomitant]
     Active Substance: RITUXIMAB
     Indication: Chronic graft versus host disease in eye
  17. RITUXAN [Concomitant]
     Active Substance: RITUXIMAB
     Indication: Graft versus host disease oral
  18. OXYGEN [Concomitant]
     Active Substance: OXYGEN
     Indication: Chronic obstructive pulmonary disease
     Route: 065

REACTIONS (12)
  - Wound [Not Recovered/Not Resolved]
  - Leukocytosis [Not Recovered/Not Resolved]
  - Bronchiectasis [Unknown]
  - Immunodeficiency [Unknown]
  - Arteriosclerosis coronary artery [Unknown]
  - Cough [Not Recovered/Not Resolved]
  - Aortic valve calcification [Unknown]
  - Arthropathy [Unknown]
  - Rib fracture [Unknown]
  - Rib deformity [Unknown]
  - Renal cyst [Unknown]
  - Productive cough [Unknown]
